FAERS Safety Report 16261349 (Version 1)
Quarter: 2019Q2

REPORT INFORMATION
  Report Type: Spontaneous
  Country: FR (occurrence: FR)
  Receive Date: 20190501
  Receipt Date: 20190501
  Transmission Date: 20190711
  Serious: Yes (Hospitalization)
  Sender: FDA-Public Use
  Company Number: FR-PFIZER INC-2019181089

PATIENT
  Age: 59 Year
  Sex: Female
  Weight: 52 kg

DRUGS (12)
  1. FEMARA [Concomitant]
     Active Substance: LETROZOLE
  2. FIXICAL [Suspect]
     Active Substance: CALCIUM CARBONATE
     Indication: MINERAL SUPPLEMENTATION
     Dosage: 1 DF, 1X/DAY
     Route: 048
     Dates: end: 20190210
  3. OXYCODONE [Suspect]
     Active Substance: OXYCODONE
     Indication: ANALGESIC THERAPY
     Dosage: 60 MG, 1X/DAY
     Route: 048
     Dates: start: 20181215, end: 20190210
  4. SIMVASTATIN. [Concomitant]
     Active Substance: SIMVASTATIN
  5. ALPRAZOLAM. [Suspect]
     Active Substance: ALPRAZOLAM
     Indication: AFFECTIVE DISORDER
     Dosage: MAX 4/DAY
     Route: 048
     Dates: end: 20190210
  6. OXYNORM [Suspect]
     Active Substance: OXYCODONE HYDROCHLORIDE
     Indication: ANALGESIC THERAPY
     Dosage: 1 DF, EVERY 4 HOURS
     Route: 048
     Dates: start: 20181215, end: 20190210
  7. UVEDOSE [Concomitant]
     Active Substance: CHOLECALCIFEROL
  8. STAGID [Concomitant]
     Active Substance: METFORMIN PAMOATE
  9. AMLODIPINE [Concomitant]
     Active Substance: AMLODIPINE BESYLATE
  10. TEMERIT [Concomitant]
     Active Substance: NEBIVOLOL
  11. XELEVIA [Concomitant]
     Active Substance: SITAGLIPTIN PHOSPHATE
  12. DIAMICRON [Concomitant]
     Active Substance: GLICLAZIDE

REACTIONS (2)
  - Confusional state [Recovered/Resolved]
  - Dyspnoea [Recovered/Resolved]

NARRATIVE: CASE EVENT DATE: 20190210
